FAERS Safety Report 4955795-5 (Version None)
Quarter: 2006Q1

REPORT INFORMATION
  Report Type: 
  Country: None (occurrence: None)
  Receive Date: 20060327
  Receipt Date: 20060327
  Transmission Date: 20060701
  Serious: Yes (Life-Threatening)
  Sender: FDA-Public Use
  Company Number: None

PATIENT
  Sex: Female
  Weight: 16 kg

DRUGS (2)
  1. DEFIBROTIDE [Suspect]
     Indication: BONE MARROW TRANSPLANT
     Dosage: 40MG/KG  IV/Q6HRS   Q6HRS   IV
     Route: 042
     Dates: start: 20060303, end: 20060310
  2. DEFIBROTIDE [Suspect]
     Indication: VENOOCCLUSIVE LIVER DISEASE
     Dosage: 40MG/KG  IV/Q6HRS   Q6HRS   IV
     Route: 042
     Dates: start: 20060303, end: 20060310

REACTIONS (7)
  - BLOOD PRESSURE DECREASED [None]
  - BRADYCARDIA [None]
  - HAEMATEMESIS [None]
  - NAUSEA [None]
  - OXYGEN SATURATION DECREASED [None]
  - RESPIRATORY DISORDER [None]
  - RESUSCITATION [None]
